FAERS Safety Report 9200777 (Version 1)
Quarter: 2013Q1

REPORT INFORMATION
  Report Type: Spontaneous
  Country: US (occurrence: None)
  Receive Date: 20130328
  Receipt Date: 20130328
  Transmission Date: 20140127
  Serious: Yes (Other)
  Sender: FDA-Public Use
  Company Number: None

PATIENT
  Age: 44 Year
  Sex: Male
  Weight: 83.92 kg

DRUGS (1)
  1. PRISTIQ [Suspect]
     Indication: DEPRESSION
     Route: 048
     Dates: start: 20110307, end: 20130101

REACTIONS (8)
  - Drug dependence [None]
  - Drug withdrawal syndrome [None]
  - Irritability [None]
  - Nausea [None]
  - Dizziness [None]
  - Paraesthesia [None]
  - Abnormal behaviour [None]
  - Amnesia [None]
